FAERS Safety Report 24147128 (Version 1)
Quarter: 2024Q3

REPORT INFORMATION
  Report Type: Spontaneous
  Country: US (occurrence: US)
  Receive Date: 20240729
  Receipt Date: 20240729
  Transmission Date: 20241016
  Serious: Yes (Hospitalization, Other)
  Sender: GALDERMA
  Company Number: US-MLMSERVICE-20240513-PI060995-00186-1

PATIENT

DRUGS (2)
  1. IVERMECTIN [Suspect]
     Active Substance: IVERMECTIN
     Indication: COVID-19
     Dosage: UNK
     Route: 048
  2. DIETHYLTOLUAMIDE [Concomitant]
     Active Substance: DIETHYLTOLUAMIDE
     Indication: COVID-19
     Dosage: UNK
     Route: 048

REACTIONS (18)
  - Sepsis [Unknown]
  - Pneumonia [Unknown]
  - Delirium [Unknown]
  - Confusional state [Unknown]
  - Tremor [Unknown]
  - Agitation [Unknown]
  - Restlessness [Unknown]
  - Pyrexia [Unknown]
  - Ischaemic hepatitis [Unknown]
  - Encephalopathy [Unknown]
  - Hepatic failure [Unknown]
  - Acute kidney injury [Unknown]
  - Mental status changes [Not Recovered/Not Resolved]
  - Metabolic acidosis [Unknown]
  - Toxicity to various agents [Unknown]
  - Accidental exposure to product [Recovered/Resolved]
  - Product use in unapproved indication [Recovered/Resolved]
  - Incorrect route of product administration [Recovered/Resolved]
